FAERS Safety Report 5270663-X (Version None)
Quarter: 2007Q1

REPORT INFORMATION
  Report Type: 
  Country: None (occurrence: None)
  Receive Date: 20061214
  Receipt Date: 20060925
  Transmission Date: 20070707
  Serious: Yes (Hospitalization)
  Sender: FDA-Public Use
  Company Number: 2006119049

PATIENT
  Sex: Female

DRUGS (2)
  1. BEXTRA [Suspect]
     Dates: start: 20040803
  2. VIOXX [Suspect]
     Dosage: ORAL
     Route: 048
     Dates: start: 20001101, end: 20040926

REACTIONS (1)
  - DEEP VEIN THROMBOSIS [None]
